FAERS Safety Report 7979256-4 (Version None)
Quarter: 2011Q4

REPORT INFORMATION
  Report Type: 
  Country: None (occurrence: None)
  Receive Date: 20111214
  Receipt Date: 20111214
  Transmission Date: 20120403
  Serious: Yes (Life-Threatening, Hospitalization)
  Sender: FDA-Public Use
  Company Number: None

PATIENT
  Sex: Male
  Weight: 108.9 kg

DRUGS (1)
  1. PRADAXA [Suspect]
     Indication: ATRIAL FIBRILLATION
     Dosage: 150MG
     Route: 048
     Dates: start: 20110601, end: 20111124

REACTIONS (3)
  - HEMIPARESIS [None]
  - HAEMORRHAGE INTRACRANIAL [None]
  - DEPRESSED LEVEL OF CONSCIOUSNESS [None]
